FAERS Safety Report 11125780 (Version 1)
Quarter: 2015Q2

REPORT INFORMATION
  Report Type: Spontaneous
  Country: US (occurrence: US)
  Receive Date: 20150520
  Receipt Date: 20150520
  Transmission Date: 20150821
  Serious: No
  Sender: FDA-Public Use
  Company Number: US-SA-2015SA027735

PATIENT

DRUGS (2)
  1. ELOXATIN [Suspect]
     Active Substance: OXALIPLATIN
     Route: 065
  2. 5 FU [Suspect]
     Active Substance: FLUOROURACIL
     Route: 065

REACTIONS (1)
  - Wrong technique in drug usage process [Unknown]
